FAERS Safety Report 8588501-6 (Version None)
Quarter: 2012Q3

REPORT INFORMATION
  Report Type: 
  Country: None (occurrence: None)
  Receive Date: 20120813
  Receipt Date: 20120803
  Transmission Date: 20120928
  Serious: Yes (Hospitalization, Other)
  Sender: FDA-Public Use
  Company Number: US-JNJFOC-20120705557

PATIENT
  Sex: Male
  Weight: 79.38 kg

DRUGS (2)
  1. PREDNISONE TAB [Concomitant]
     Route: 065
  2. ZYTIGA [Suspect]
     Indication: PROSTATE CANCER
     Dosage: APPROXIMATELY 3 WEEKS OF THERAPY
     Route: 048

REACTIONS (2)
  - GLIOBLASTOMA MULTIFORME [None]
  - CATARACT [None]
